FAERS Safety Report 10676031 (Version 2)
Quarter: 2014Q4

REPORT INFORMATION
  Report Type: Spontaneous
  Country: AU (occurrence: AU)
  Receive Date: 20141225
  Receipt Date: 20141225
  Transmission Date: 20150529
  Serious: Yes (Other)
  Sender: FDA-Public Use
  Company Number: PHBS1998AU11431

PATIENT
  Age: 25 Year
  Sex: Female
  Weight: 94.5 kg

DRUGS (1)
  1. METHYSERGIDE MALEATE [Suspect]
     Active Substance: METHYSERGIDE MALEATE
     Indication: MIGRAINE
     Dosage: 1 MG, TID
     Route: 048

REACTIONS (13)
  - Oedema peripheral [Recovered/Resolved]
  - Skin atrophy [Recovered/Resolved]
  - Abdominal pain [Recovered/Resolved]
  - Abdominal pain lower [Recovered/Resolved]
  - Hydronephrosis [Recovered/Resolved]
  - Oedema [Recovered/Resolved]
  - Iliac vein occlusion [Recovered/Resolved]
  - Peripheral swelling [Recovered/Resolved]
  - Abdominal distension [Recovered/Resolved]
  - Abdominal tenderness [Recovered/Resolved]
  - Retroperitoneal fibrosis [Recovered/Resolved]
  - Gait disturbance [Recovered/Resolved]
  - Superficial vein prominence [Recovered/Resolved]
